FAERS Safety Report 26172024 (Version 3)
Quarter: 2025Q4

REPORT INFORMATION
  Report Type: Spontaneous
  Country: US (occurrence: US)
  Receive Date: 20251217
  Receipt Date: 20251229
  Transmission Date: 20260118
  Serious: No
  Sender: ABBVIE
  Company Number: US-ABBVIE-6585493

PATIENT
  Age: 82 Year
  Sex: Female
  Weight: 62 kg

DRUGS (4)
  1. CYCLOSPORINE [Suspect]
     Active Substance: CYCLOSPORINE
     Indication: Product used for unknown indication
     Dosage: TWICE A DAY IN EACH EYE
     Route: 047
  2. ZOLPIDEM [Concomitant]
     Active Substance: ZOLPIDEM TARTRATE
     Indication: Sleep disorder therapy
  3. VITAMINS [Concomitant]
     Active Substance: VITAMINS
     Indication: Product used for unknown indication
  4. PROLIA [Concomitant]
     Active Substance: DENOSUMAB
     Indication: Bone density abnormal
     Dosage: INJECTION

REACTIONS (7)
  - Halo vision [Unknown]
  - Eye disorder [Unknown]
  - Multiple use of single-use product [Unknown]
  - Eyelid irritation [Unknown]
  - Hyperaesthesia [Unknown]
  - Adverse drug reaction [Unknown]
  - Product use issue [Unknown]
